FAERS Safety Report 4657498-3 (Version None)
Quarter: 2005Q2

REPORT INFORMATION
  Report Type: 
  Country: None (occurrence: None)
  Receive Date: 20050510
  Receipt Date: 20050501
  Transmission Date: 20051028
  Serious: Yes (Life-Threatening, Hospitalization)
  Sender: FDA-Public Use
  Company Number: US-JNJFOC-20050500877

PATIENT
  Sex: Female
  Weight: 46.27 kg

DRUGS (8)
  1. EXTRA STRENGTH TYLENOL [Suspect]
     Route: 049
  2. EXTRA STRENGTH TYLENOL [Suspect]
     Indication: SCOLIOSIS
     Dosage: 500 TO 1000MG PO BID, NO MORE THAN 4000MG DAILY
     Route: 049
  3. LORTAB [Concomitant]
  4. LORTAB [Concomitant]
     Dosage: 1 OR 2 PO BID TO TID
  5. EXCEDRIN (MIGRAINE) [Concomitant]
     Route: 049
  6. EXCEDRIN (MIGRAINE) [Concomitant]
     Route: 049
  7. EXCEDRIN (MIGRAINE) [Concomitant]
     Route: 049
  8. EXCEDRIN (MIGRAINE) [Concomitant]
     Dosage: PO PRN
     Route: 049

REACTIONS (5)
  - CIRCULATORY COLLAPSE [None]
  - HEPATIC FAILURE [None]
  - LOSS OF CONSCIOUSNESS [None]
  - MIGRAINE [None]
  - VOMITING [None]
